FAERS Safety Report 25711838 (Version 1)
Quarter: 2025Q3

REPORT INFORMATION
  Report Type: Spontaneous
  Country: US (occurrence: US)
  Receive Date: 20250821
  Receipt Date: 20250821
  Transmission Date: 20251021
  Serious: Yes (Life-Threatening, Hospitalization, Disabling)
  Sender: BOEHRINGER INGELHEIM
  Company Number: US-Komodo Health-a23aa000009eCoUAAU

PATIENT
  Age: 83 Year
  Sex: Male

DRUGS (1)
  1. SPIRIVA RESPIMAT [Suspect]
     Active Substance: TIOTROPIUM BROMIDE
     Indication: Lung disorder

REACTIONS (6)
  - Cardiac disorder [Recovering/Resolving]
  - Nephrolithiasis [Recovering/Resolving]
  - Cognitive disorder [Not Recovered/Not Resolved]
  - Post procedural haemorrhage [Recovering/Resolving]
  - Dyspnoea [Unknown]
  - Bedridden [Unknown]

NARRATIVE: CASE EVENT DATE: 20240101
